FAERS Safety Report 7391748-8 (Version None)
Quarter: 2011Q2

REPORT INFORMATION
  Report Type: 
  Country: None (occurrence: None)
  Receive Date: 20110404
  Receipt Date: 20110323
  Transmission Date: 20111010
  Serious: Yes (Hospitalization)
  Sender: FDA-Public Use
  Company Number: FR-ROCHE-540632

PATIENT
  Sex: Male

DRUGS (10)
  1. PROGRAF [Suspect]
     Route: 048
  2. CELLCEPT [Suspect]
     Route: 048
     Dates: start: 20071005, end: 20080417
  3. NEXIUM [Concomitant]
     Dosage: 1 IN THE EVENING.
  4. MAGNESIUM CARBONATE [Concomitant]
     Dosage: DRUG NAME REPORTED: MAG2. DOSAGE: 1 MORNING AND EVENING
  5. IDEOS [Concomitant]
     Dosage: DOSAGE: 1 MORNING AND EVENING.
  6. SPECIAFOLDINE [Concomitant]
     Dosage: DRUG NAME REPORTED: SPECIALFOLDINE. IN THE MORNING.
  7. KARDEGIC [Concomitant]
     Dosage: IN THE MORNING
     Dates: end: 20080417
  8. SOLUPRED [Concomitant]
  9. CORTANCYL [Suspect]
     Route: 048
     Dates: end: 20071026
  10. HYDROCORTISONE [Concomitant]
     Dosage: IN THE MORNING.

REACTIONS (3)
  - COLITIS ULCERATIVE [None]
  - CYTOMEGALOVIRUS INFECTION [None]
  - VIRAL TEST POSITIVE [None]
